FAERS Safety Report 6985860-2 (Version None)
Quarter: 2010Q3

REPORT INFORMATION
  Report Type: 
  Country: None (occurrence: None)
  Receive Date: 20100915
  Receipt Date: 20100907
  Transmission Date: 20110219
  Serious: Yes (Death, Other)
  Sender: FDA-Public Use
  Company Number: HQWYE804103FEB04

PATIENT
  Age: 14 Year
  Sex: Female

DRUGS (1)
  1. EFFEXOR [Suspect]

REACTIONS (20)
  - AGITATION [None]
  - AKATHISIA [None]
  - ALCOHOL POISONING [None]
  - COMPLETED SUICIDE [None]
  - CONTUSION [None]
  - EDUCATIONAL PROBLEM [None]
  - EXCORIATION [None]
  - INDIFFERENCE [None]
  - INSOMNIA [None]
  - LACERATION [None]
  - PSYCHOMOTOR HYPERACTIVITY [None]
  - PSYCHOTIC DISORDER [None]
  - RESTLESSNESS [None]
  - SCRATCH [None]
  - SKIN EXFOLIATION [None]
  - SKULL FRACTURE [None]
  - SUICIDAL IDEATION [None]
  - THINKING ABNORMAL [None]
  - TOXICOLOGIC TEST ABNORMAL [None]
  - WOUND DECOMPOSITION [None]
